FAERS Safety Report 6244549-8 (Version None)
Quarter: 2009Q2

REPORT INFORMATION
  Report Type: 
  Country: None (occurrence: None)
  Receive Date: 20090625
  Receipt Date: 20090612
  Transmission Date: 20091009
  Serious: Yes (Other)
  Sender: FDA-Public Use
  Company Number: SE-ASTRAZENECA-2009SE01915

PATIENT
  Age: 24014 Day
  Sex: Female
  Weight: 65 kg

DRUGS (5)
  1. TENORMIN [Suspect]
     Route: 048
     Dates: start: 20090427, end: 20090511
  2. SIMVASTATIN [Concomitant]
  3. TROMBYL [Concomitant]
  4. LEVOTHYROXINE SODIUM [Concomitant]
  5. TRAMADOL HCL [Concomitant]
     Dates: start: 20030101

REACTIONS (5)
  - ANGIOEDEMA [None]
  - BLOOD PRESSURE INCREASED [None]
  - DEPRESSED MOOD [None]
  - DIZZINESS [None]
  - OROPHARYNGEAL BLISTERING [None]
